FAERS Safety Report 6966957-X (Version None)
Quarter: 2010Q3

REPORT INFORMATION
  Report Type: 
  Country: None (occurrence: None)
  Receive Date: 20100906
  Receipt Date: 20100824
  Transmission Date: 20110219
  Serious: Yes (Hospitalization)
  Sender: FDA-Public Use
  Company Number: PHHY2010SD55766

PATIENT
  Age: 35 Year
  Sex: Female

DRUGS (1)
  1. CYCLOSPORINE [Suspect]
     Indication: RENAL TRANSPLANT
     Dosage: 175 MG, DAILY

REACTIONS (5)
  - BREAST MASS [None]
  - BREAST SWELLING [None]
  - FIBROADENOMA OF BREAST [None]
  - GINGIVAL HYPERTROPHY [None]
  - TUMOUR EXCISION [None]
